FAERS Safety Report 16292246 (Version 7)
Quarter: 2022Q3

REPORT INFORMATION
  Report Type: Report from Study
  Country: CA (occurrence: CA)
  Receive Date: 20190509
  Receipt Date: 20220708
  Transmission Date: 20221026
  Serious: Yes (Other)
  Sender: FDA-Public Use
  Company Number: CA-GLAXOSMITHKLINE-CA2019GSK076210

PATIENT

DRUGS (10)
  1. ALBUTEROL SULFATE [Suspect]
     Active Substance: ALBUTEROL SULFATE
     Indication: Asthma
     Dosage: 1 PUFF(S), Z, 1-2 PUFFS PRN, 100 UG
     Route: 055
     Dates: start: 20190517
  2. MONTELUKAST [Suspect]
     Active Substance: MONTELUKAST SODIUM
     Indication: Product used for unknown indication
     Dosage: 10 MG, UNK
  3. NUCALA [Suspect]
     Active Substance: MEPOLIZUMAB
     Indication: Asthma
     Dosage: 100 MG, Z, MONTHLY
     Route: 042
     Dates: start: 20190517
  4. ZENHALE [Suspect]
     Active Substance: FORMOTEROL FUMARATE\MOMETASONE FUROATE
     Indication: Product used for unknown indication
     Dosage: 2 PUFF(S), BID (200/5 MCG)
     Route: 055
  5. ZENHALE [Suspect]
     Active Substance: FORMOTEROL FUMARATE\MOMETASONE FUROATE
     Dosage: 2 PUFF(S), TID
  6. SPIRIVA RESPIMAT [Suspect]
     Active Substance: TIOTROPIUM BROMIDE
     Indication: Product used for unknown indication
     Dosage: 2 PUFF(S), 1D (2.5 MCG)
     Route: 055
  7. SINGULAIR [Suspect]
     Active Substance: MONTELUKAST SODIUM
     Indication: Product used for unknown indication
     Dosage: UNK
  8. PREDNISONE [Suspect]
     Active Substance: PREDNISONE
     Indication: Asthma
     Dosage: 10 MG, QD
  9. PREDNISONE [Suspect]
     Active Substance: PREDNISONE
     Dosage: 25 MG, QD
  10. PREDNISONE [Suspect]
     Active Substance: PREDNISONE
     Dosage: UNK PRN, (AS REQUIRED)

REACTIONS (19)
  - Glaucoma [Unknown]
  - Pulmonary congestion [Unknown]
  - Asthma [Unknown]
  - Full blood count abnormal [Unknown]
  - Eosinophilia [Unknown]
  - Wheezing [Recovering/Resolving]
  - Productive cough [Unknown]
  - Obstructive airways disorder [Unknown]
  - Dizziness [Unknown]
  - Eye disorder [Unknown]
  - Nasal congestion [Unknown]
  - Bronchial disorder [Not Recovered/Not Resolved]
  - Respiratory tract congestion [Unknown]
  - Ocular hyperaemia [Unknown]
  - Stress [Unknown]
  - Dyspnoea [Recovering/Resolving]
  - Sinus congestion [Unknown]
  - Nasopharyngitis [Unknown]
  - Therapeutic product effect incomplete [Unknown]
